FAERS Safety Report 9818917 (Version 3)
Quarter: 2014Q1

REPORT INFORMATION
  Report Type: Spontaneous
  Country: US (occurrence: US)
  Receive Date: 20140115
  Receipt Date: 20140228
  Transmission Date: 20141002
  Serious: Yes (Death, Hospitalization, Other)
  Sender: FDA-Public Use
  Company Number: US-PFIZER INC-2014008376

PATIENT
  Age: 85 Year
  Sex: Female

DRUGS (11)
  1. REVATIO [Suspect]
     Indication: PULMONARY ARTERIAL HYPERTENSION
     Dosage: 20 MG, 3X/DAY
     Route: 048
     Dates: start: 20120927
  2. REVATIO [Suspect]
     Indication: CARDIAC DISORDER
  3. SPIRONOLACTONE [Concomitant]
     Dosage: UNK
  4. ROPINIROLE [Concomitant]
     Dosage: UNK
  5. DIGOXIN [Concomitant]
     Dosage: UNK
  6. FUROSEMIDE [Concomitant]
     Dosage: UNK
  7. FLUOXETINE [Concomitant]
     Dosage: UNK
  8. L-THYROXIN [Concomitant]
     Dosage: UNK
  9. LATANOPROST [Concomitant]
     Dosage: UNK
     Route: 047
  10. WARFARIN [Concomitant]
     Dosage: UNK
  11. MULTIVITAMINS [Concomitant]

REACTIONS (3)
  - Cardiac failure congestive [Fatal]
  - Cardiopulmonary failure [Fatal]
  - Off label use [Unknown]
